FAERS Safety Report 8220277-4 (Version None)
Quarter: 2012Q1

REPORT INFORMATION
  Report Type: 
  Country: None (occurrence: None)
  Receive Date: 20120320
  Receipt Date: 20120314
  Transmission Date: 20120608
  Serious: No
  Sender: FDA-Public Use
  Company Number: US-PFIZER INC-2012067719

PATIENT
  Sex: Female
  Weight: 68.027 kg

DRUGS (5)
  1. EFFEXOR XR [Suspect]
     Indication: DEPRESSION
     Dosage: 75 MG, 1X/DAY
     Route: 048
     Dates: start: 20120313
  2. LITHIUM [Concomitant]
     Indication: MENTAL DISORDER
     Dosage: 300 MG, 2X/DAY
  3. ULTRAM [Concomitant]
     Indication: PAIN
     Dosage: 50 MG, 6X/DAY
  4. FLEXERIL [Concomitant]
     Indication: MUSCLE SPASMS
     Dosage: 10 MG, 3X/DAY
  5. BUSPIRONE [Concomitant]
     Indication: ANXIETY
     Dosage: 50 MG, 1X/DAY

REACTIONS (1)
  - MYDRIASIS [None]
